FAERS Safety Report 20806376 (Version 1)
Quarter: 2022Q2

REPORT INFORMATION
  Report Type: Spontaneous
  Country: JP (occurrence: JP)
  Receive Date: 20220510
  Receipt Date: 20220510
  Transmission Date: 20220720
  Serious: Yes (Other)
  Sender: FDA-Public Use
  Company Number: JP-ASTELLAS-2022JP006450

PATIENT
  Age: 65 Year
  Sex: Female

DRUGS (1)
  1. ZOLPIDEM TARTRATE [Suspect]
     Active Substance: ZOLPIDEM TARTRATE
     Indication: Product used for unknown indication
     Dosage: 20 MG
     Route: 048
     Dates: start: 20220428

REACTIONS (9)
  - Arrhythmia [Unknown]
  - Hyperkalaemia [Unknown]
  - Renal impairment [Unknown]
  - Blood pressure decreased [Unknown]
  - Cold sweat [Unknown]
  - Chest discomfort [Unknown]
  - Oliguria [Unknown]
  - Electrocardiogram abnormal [Unknown]
  - Intentional overdose [Unknown]

NARRATIVE: CASE EVENT DATE: 20220428
